FAERS Safety Report 20113112 (Version 1)
Quarter: 2021Q4

REPORT INFORMATION
  Report Type: Other
  Country: None (occurrence: US)
  Receive Date: 20211125
  Receipt Date: 20211125
  Transmission Date: 20220304
  Serious: Yes (Other)
  Sender: FDA-Public Use
  Company Number: US-Renata Limited-2122325

PATIENT
  Age: 58 Year
  Sex: Male

DRUGS (4)
  1. ROSUVASTATIN CALCIUM [Suspect]
     Active Substance: ROSUVASTATIN CALCIUM
     Indication: Product used for unknown indication
     Route: 065
  2. AMLODIPINE [Concomitant]
     Active Substance: AMLODIPINE BESYLATE
     Route: 065
  3. LISINOPRIL [Concomitant]
     Active Substance: LISINOPRIL
     Route: 065
  4. TAMSULOSIN HYDROCHLORIDE [Concomitant]
     Active Substance: TAMSULOSIN HYDROCHLORIDE
     Route: 065

REACTIONS (1)
  - Orbital myositis [Recovered/Resolved]
